FAERS Safety Report 4349850-0 (Version None)
Quarter: 2004Q2

REPORT INFORMATION
  Report Type: 
  Country: None (occurrence: None)
  Receive Date: 20040426
  Receipt Date: 20040416
  Transmission Date: 20050107
  Serious: Yes (Other)
  Sender: FDA-Public Use
  Company Number: GB-JNJFOC-20040403260

PATIENT
  Age: 66 Year
  Sex: Female

DRUGS (7)
  1. REMICADE [Suspect]
     Indication: RHEUMATOID ARTHRITIS
     Dosage: 205 MG, INTRAVENOUS
     Route: 042
     Dates: start: 20021016, end: 20031028
  2. METHOTREXATE [Concomitant]
  3. HYDROXYCHLOROQUINE SULFATE [Concomitant]
  4. SULPHASALAZINE (SULPHASALAZINE) [Concomitant]
  5. PREDNISOLONE [Concomitant]
  6. FOLIC ACID [Concomitant]
  7. CALCICHEW (CALCIUM CARBONATE) [Concomitant]

REACTIONS (1)
  - TUBERCULOSIS [None]
